FAERS Safety Report 8274163-4 (Version None)
Quarter: 2012Q2

REPORT INFORMATION
  Report Type: 
  Country: None (occurrence: None)
  Receive Date: 20120411
  Receipt Date: 20120402
  Transmission Date: 20120825
  Serious: Yes (Disabling)
  Sender: FDA-Public Use
  Company Number: US-ASTRAZENECA-2012SE18806

PATIENT
  Age: 63 Year
  Sex: Female

DRUGS (13)
  1. PAXIL [Concomitant]
     Dosage: RRN
  2. ZETIA [Concomitant]
  3. KLOR-CON [Concomitant]
  4. ASPIRIN [Concomitant]
     Dosage: DAILY
  5. CRESTOR [Suspect]
     Indication: BLOOD CHOLESTEROL
     Route: 048
  6. CALCIUM 600 WITH VIT D [Concomitant]
  7. THYROID MEDICATION [Concomitant]
  8. LASIX GENERIC [Concomitant]
  9. PRILOSEC [Suspect]
     Indication: DYSPEPSIA
     Route: 048
     Dates: start: 20070101
  10. ATENOLOL [Concomitant]
  11. IBUPROFEN [Concomitant]
  12. TRILIPIX [Concomitant]
  13. CAPTOPRIL [Concomitant]

REACTIONS (2)
  - DEAFNESS BILATERAL [None]
  - INCORRECT DRUG ADMINISTRATION DURATION [None]
